FAERS Safety Report 19184703 (Version 3)
Quarter: 2021Q2

REPORT INFORMATION
  Report Type: Spontaneous
  Country: ES (occurrence: ES)
  Receive Date: 20210427
  Receipt Date: 20210507
  Transmission Date: 20210717
  Serious: Yes (Other)
  Sender: FDA-Public Use
  Company Number: ES-PFIZER INC-K200500705

PATIENT
  Age: 44 Year
  Sex: Female

DRUGS (1)
  1. PENICILLIN G PROCAINE. [Suspect]
     Active Substance: PENICILLIN G PROCAINE
     Indication: TONSILLITIS
     Dosage: 1200000 IU, 1X/DAY
     Route: 030
     Dates: start: 200112

REACTIONS (1)
  - Hoigne^s syndrome [Recovered/Resolved]
